FAERS Safety Report 23757800 (Version 1)
Quarter: 2024Q2

REPORT INFORMATION
  Report Type: Spontaneous
  Country: US (occurrence: None)
  Receive Date: 20240418
  Receipt Date: 20240418
  Transmission Date: 20240716
  Serious: No
  Sender: FDA-Public Use
  Company Number: None

PATIENT
  Age: 73 Year
  Sex: Female
  Weight: 63.5 kg

DRUGS (1)
  1. ROSUVASTATIN CALCIUM [Suspect]
     Active Substance: ROSUVASTATIN CALCIUM
     Indication: Blood cholesterol increased
     Dosage: 1 DAILY MOUTH?
     Route: 048
     Dates: start: 20231120, end: 20231122

REACTIONS (5)
  - Syncope [None]
  - Back pain [None]
  - Myalgia [None]
  - Abnormal dreams [None]
  - Poor quality sleep [None]

NARRATIVE: CASE EVENT DATE: 20231120
